FAERS Safety Report 7800458-1 (Version None)
Quarter: 2011Q4

REPORT INFORMATION
  Report Type: 
  Country: None (occurrence: None)
  Receive Date: 20111006
  Receipt Date: 20111004
  Transmission Date: 20120403
  Serious: Yes (Death)
  Sender: FDA-Public Use
  Company Number: GB-PFIZER INC-2011219642

PATIENT
  Sex: Female

DRUGS (1)
  1. CYTOTEC [Suspect]
     Indication: ABORTION INDUCED
     Dosage: 200 UG, UNK
     Route: 067

REACTIONS (3)
  - UTERINE RUPTURE [None]
  - OFF LABEL USE [None]
  - INCORRECT DOSE ADMINISTERED [None]
